FAERS Safety Report 8486007 (Version 2)
Quarter: 2012Q4

REPORT INFORMATION
  Report Type: 
  Country: US (occurrence: US)
  Receive Date: 20120331
  Receipt Date: 20120907
  Transmission Date: 20130627
  Serious: Yes (Hospitalization, Other)
  Sender: FDA-Public Use
  Company Number: US-ALLERGAN-1204067US

PATIENT
  Age: 55 Year
  Sex: Female

DRUGS (1)
  1. BOTOX COSMETIC [Suspect]
     Indication: FROWN LINES
     Dosage: 30 UNITS, single
     Route: 030
     Dates: start: 20101117, end: 20101117

REACTIONS (20)
  - Coma [Not Recovered/Not Resolved]
  - Muscle spasms [Not Recovered/Not Resolved]
  - Dyspnoea [Not Recovered/Not Resolved]
  - Botulism [Not Recovered/Not Resolved]
  - Bedridden [Recovered/Resolved]
  - Tremor [Not Recovered/Not Resolved]
  - Muscle spasms [Not Recovered/Not Resolved]
  - Neck pain [Not Recovered/Not Resolved]
  - Sinusitis [Not Recovered/Not Resolved]
  - Urinary incontinence [Not Recovered/Not Resolved]
  - Muscle spasms [Not Recovered/Not Resolved]
  - Cough [Recovered/Resolved]
  - Skin warm [Unknown]
  - Ear discomfort [Unknown]
  - Oropharyngeal pain [Recovered/Resolved]
  - Aphonia [Recovered/Resolved]
  - Visual impairment [Not Recovered/Not Resolved]
  - Asthenia [Unknown]
  - Asthenia [Not Recovered/Not Resolved]
  - Vision blurred [Not Recovered/Not Resolved]
